FAERS Safety Report 5941339-8 (Version None)
Quarter: 2008Q4

REPORT INFORMATION
  Report Type: 
  Country: None (occurrence: None)
  Receive Date: 20081104
  Receipt Date: 20081104
  Transmission Date: 20090506
  Serious: Yes (Other)
  Sender: FDA-Public Use
  Company Number: None

PATIENT
  Age: 42 Year
  Sex: Female
  Weight: 63.5036 kg

DRUGS (1)
  1. MIRENA [Suspect]
     Indication: CONTRACEPTION
     Dosage: 1 UNIT INTRA-UTERINE
     Route: 015
     Dates: start: 20081021, end: 20081028

REACTIONS (7)
  - ABDOMINAL PAIN [None]
  - CHILLS [None]
  - IUCD COMPLICATION [None]
  - MENORRHAGIA [None]
  - MUSCLE SPASMS [None]
  - NAUSEA [None]
  - NIGHT SWEATS [None]
